FAERS Safety Report 13075505 (Version 2)
Quarter: 2017Q1

REPORT INFORMATION
  Report Type: Report from Study
  Country: NL (occurrence: NL)
  Receive Date: 20161230
  Receipt Date: 20170126
  Transmission Date: 20170428
  Serious: Yes (Other)
  Sender: FDA-Public Use
  Company Number: NL-TEVA-723757ROM

PATIENT
  Sex: Male

DRUGS (3)
  1. PARIET 20MG [Concomitant]
     Dosage: 40 MILLIGRAM DAILY;
  2. COPAXONE [Suspect]
     Active Substance: GLATIRAMER ACETATE
     Indication: RELAPSING-REMITTING MULTIPLE SCLEROSIS
     Route: 058
     Dates: start: 20160229, end: 20170113
  3. VITAMIN D [Concomitant]
     Active Substance: CHOLECALCIFEROL

REACTIONS (2)
  - Spermatozoa abnormal [Not Recovered/Not Resolved]
  - Infertility male [Not Recovered/Not Resolved]
